FAERS Safety Report 11047754 (Version 1)
Quarter: 2015Q2

REPORT INFORMATION
  Report Type: Spontaneous
  Country: US (occurrence: None)
  Receive Date: 20150417
  Receipt Date: 20150417
  Transmission Date: 20150821
  Serious: No
  Sender: FDA-Public Use
  Company Number: None

PATIENT
  Age: 51 Year
  Sex: Male
  Weight: 136.08 kg

DRUGS (4)
  1. TERBINAFINE [Suspect]
     Active Substance: TERBINAFINE
     Indication: TINEA PEDIS
     Dosage: 1 PILL
     Route: 048
     Dates: start: 20150301, end: 20150401
  2. TERBINAFINE [Concomitant]
     Active Substance: TERBINAFINE
  3. CIPRO [Concomitant]
     Active Substance: CIPROFLOXACIN HYDROCHLORIDE
  4. CPAP [Concomitant]
     Active Substance: DEVICE

REACTIONS (8)
  - Nervousness [None]
  - Erythema [None]
  - Product substitution issue [None]
  - Product quality issue [None]
  - Dizziness [None]
  - Fatigue [None]
  - Chills [None]
  - Oedema peripheral [None]

NARRATIVE: CASE EVENT DATE: 20150401
